FAERS Safety Report 24996919 (Version 1)
Quarter: 2025Q1

REPORT INFORMATION
  Report Type: Spontaneous
  Country: CN (occurrence: CN)
  Receive Date: 20250221
  Receipt Date: 20250221
  Transmission Date: 20250409
  Serious: Yes (Hospitalization, Disabling, Other)
  Sender: PFIZER
  Company Number: CN-PFIZER INC-PV202500019373

PATIENT
  Age: 7 Year
  Sex: Male
  Weight: 20 kg

DRUGS (7)
  1. CYTARABINE [Suspect]
     Active Substance: CYTARABINE
     Indication: Acute lymphocytic leukaemia
     Dosage: 0.036 G, 1X/DAY
     Route: 037
     Dates: start: 20250114, end: 20250114
  2. CYTARABINE [Suspect]
     Active Substance: CYTARABINE
     Indication: Acute lymphocytic leukaemia (in remission)
     Dosage: 0.036 G, 1X/DAY
     Route: 037
     Dates: start: 20250206, end: 20250206
  3. METHOTREXATE SODIUM [Suspect]
     Active Substance: METHOTREXATE SODIUM
     Indication: Acute lymphocytic leukaemia
     Dosage: 3.6 G, 1X/DAY (ALSO REPORTED AS 3.2G)
     Route: 041
     Dates: start: 20250114, end: 20250114
  4. METHOTREXATE SODIUM [Suspect]
     Active Substance: METHOTREXATE SODIUM
     Dosage: 2.88 G, 1X/DAY
     Route: 041
     Dates: start: 20250206, end: 20250206
  5. METHOTREXATE SODIUM [Suspect]
     Active Substance: METHOTREXATE SODIUM
     Dosage: 0.32 G, 1X/DAY
     Route: 041
     Dates: start: 20250206, end: 20250206
  6. METHOTREXATE [Suspect]
     Active Substance: METHOTREXATE
     Indication: Acute lymphocytic leukaemia
     Dosage: 12 MG, 1X/DAY
     Route: 037
     Dates: start: 20250114, end: 20250114
  7. METHOTREXATE [Suspect]
     Active Substance: METHOTREXATE
     Indication: Acute lymphocytic leukaemia (in remission)
     Dosage: 12 MG, 1X/DAY
     Route: 037
     Dates: start: 20250206, end: 20250206

REACTIONS (4)
  - Transaminases increased [Recovering/Resolving]
  - Mouth ulceration [Recovering/Resolving]
  - Myelosuppression [Unknown]
  - Drug level increased [Unknown]

NARRATIVE: CASE EVENT DATE: 20250117
